FAERS Safety Report 5432187-6 (Version None)
Quarter: 2007Q3

REPORT INFORMATION
  Report Type: 
  Country: None (occurrence: None)
  Receive Date: 20070830
  Receipt Date: 20070821
  Transmission Date: 20080115
  Serious: Yes (Other)
  Sender: FDA-Public Use
  Company Number: FR-PFIZER INC-2007041468

PATIENT
  Sex: Male
  Weight: 80 kg

DRUGS (4)
  1. LYRICA [Suspect]
     Indication: NEURALGIA
     Dates: start: 20070401, end: 20070401
  2. ANTIHYPERTENSIVES [Concomitant]
  3. TRAMADOL HCL [Concomitant]
     Route: 048
  4. CALCIUM CARBONATE [Concomitant]
     Route: 048

REACTIONS (6)
  - ASTHENIA [None]
  - BALANCE DISORDER [None]
  - HALLUCINATION [None]
  - PETIT MAL EPILEPSY [None]
  - SLEEP DISORDER [None]
  - TREMOR [None]
